FAERS Safety Report 23478249 (Version 1)
Quarter: 2024Q1

REPORT INFORMATION
  Report Type: Report from Study
  Country: US (occurrence: US)
  Receive Date: 20240204
  Receipt Date: 20240204
  Transmission Date: 20240410
  Serious: No
  Sender: FDA-Public Use
  Company Number: US-EXELIXIS-CABO-23070503

PATIENT
  Sex: Male
  Weight: 100.23 kg

DRUGS (1)
  1. CABOMETYX [Suspect]
     Active Substance: CABOZANTINIB S-MALATE
     Indication: Tongue neoplasm malignant stage unspecified
     Dosage: 40 MG, QD
     Dates: start: 20231016

REACTIONS (4)
  - Hypersomnia [Unknown]
  - Confusional state [Unknown]
  - Asthenia [Unknown]
  - Off label use [Unknown]
